FAERS Safety Report 24111218 (Version 1)
Quarter: 2024Q3

REPORT INFORMATION
  Report Type: Spontaneous
  Country: GB (occurrence: GB)
  Receive Date: 20240718
  Receipt Date: 20240718
  Transmission Date: 20241016
  Serious: Yes (Life-Threatening, Hospitalization, Other)
  Sender: MERCK
  Company Number: None

PATIENT
  Age: 67 Year
  Sex: Female
  Weight: 64 kg

DRUGS (2)
  1. PEMBROLIZUMAB [Suspect]
     Active Substance: PEMBROLIZUMAB
     Indication: Adenocarcinoma
     Dosage: 200 MILLIGRAM, Q3W
     Dates: start: 20220428, end: 202404
  2. PEMETREXED [Concomitant]
     Active Substance: PEMETREXED
     Indication: Lung neoplasm malignant
     Dosage: UNK

REACTIONS (1)
  - Nephritis [Recovering/Resolving]

NARRATIVE: CASE EVENT DATE: 20240712
